FAERS Safety Report 13942049 (Version 1)
Quarter: 2017Q3

REPORT INFORMATION
  Report Type: Spontaneous
  Country: US (occurrence: None)
  Receive Date: 20170906
  Receipt Date: 20170906
  Transmission Date: 20171127
  Serious: Yes (Other)
  Sender: FDA-Public Use
  Company Number: None

PATIENT
  Age: 24 Year
  Sex: Female
  Weight: 99.79 kg

DRUGS (1)
  1. NEXPLANON [Suspect]
     Active Substance: ETONOGESTREL

REACTIONS (10)
  - Difficulty removing drug implant [None]
  - Pain in extremity [None]
  - Fatigue [None]
  - Headache [None]
  - Hypoaesthesia [None]
  - Device dislocation [None]
  - Migraine [None]
  - Depression [None]
  - Nausea [None]
  - Menorrhagia [None]

NARRATIVE: CASE EVENT DATE: 20170420
